FAERS Safety Report 15422750 (Version 1)
Quarter: 2018Q3

REPORT INFORMATION
  Report Type: Spontaneous
  Country: BR (occurrence: BR)
  Receive Date: 20180925
  Receipt Date: 20180925
  Transmission Date: 20181010
  Serious: Yes (Other)
  Sender: FDA-Public Use
  Company Number: BR-SUN PHARMACEUTICAL INDUSTRIES LTD-2018R1-176076

PATIENT
  Age: 47 Year
  Sex: Male

DRUGS (5)
  1. INFLIXIMAB [Suspect]
     Active Substance: INFLIXIMAB
     Dosage: DUE TO FAVORABLE CLINICAL EVOLUTION, REINTRODUCED INFLIXIMAB 5 MG/KG (EVERY 6 WEEKS)
     Route: 065
  2. PREDNISONE. [Suspect]
     Active Substance: PREDNISONE
     Indication: SPONDYLOARTHROPATHY
     Dosage: UNK
     Route: 065
  3. INFLIXIMAB [Suspect]
     Active Substance: INFLIXIMAB
     Indication: SPONDYLOARTHROPATHY
     Dosage: 11 INFUSIONS OF INFL IXIMAB (0.5MG/KG)
     Route: 065
  4. AZATHIOPRINE. [Suspect]
     Active Substance: AZATHIOPRINE
     Indication: SPONDYLOARTHROPATHY
  5. AZATHIOPRINE. [Suspect]
     Active Substance: AZATHIOPRINE
     Indication: PSORIATIC ARTHROPATHY
     Dosage: 2 MG/KG/D, UNK
     Route: 065

REACTIONS (3)
  - Pulmonary paracoccidioidomycosis [Recovering/Resolving]
  - Infection reactivation [Recovering/Resolving]
  - Febrile neutropenia [Unknown]
